FAERS Safety Report 5907653-7 (Version None)
Quarter: 2008Q4

REPORT INFORMATION
  Report Type: 
  Country: None (occurrence: None)
  Receive Date: 20081002
  Receipt Date: 20081002
  Transmission Date: 20090506
  Serious: No
  Sender: FDA-Public Use
  Company Number: None

PATIENT
  Age: 44 Year
  Sex: Male
  Weight: 95.71 kg

DRUGS (2)
  1. DIVALPROEX SODIUM [Suspect]
     Indication: POST-TRAUMATIC STRESS DISORDER
     Dosage: 1000 MG EVERY DAY PO
     Dates: start: 20080814, end: 20080815
  2. DIVALPROEX SODIUM [Suspect]
     Dosage: 500 MG EVERY DAY PO
     Route: 048
     Dates: start: 20080806, end: 20080814

REACTIONS (1)
  - OBSTRUCTIVE AIRWAYS DISORDER [None]
